FAERS Safety Report 17257487 (Version 1)
Quarter: 2019Q4

REPORT INFORMATION
  Report Type: Spontaneous
  Country: US (occurrence: US)
  Receive Date: 20191217
  Receipt Date: 20191217
  Transmission Date: 20200122
  Serious: No
  Sender: FDA-Public Use
  Company Number: None

PATIENT
  Age: 74 Year
  Sex: Female
  Weight: 94 kg

DRUGS (1)
  1. LISINOPRIL (LISINOPRIL 20MG TAB) [Suspect]
     Active Substance: LISINOPRIL
     Dosage: ?          OTHER FREQUENCY:AM;?
     Route: 048
     Dates: start: 20090323, end: 20190815

REACTIONS (1)
  - Angioedema [None]

NARRATIVE: CASE EVENT DATE: 20190815
